FAERS Safety Report 5456453-3 (Version None)
Quarter: 2007Q3

REPORT INFORMATION
  Report Type: 
  Country: None (occurrence: None)
  Receive Date: 20070914
  Receipt Date: 20070914
  Transmission Date: 20080115
  Serious: Yes (Life-Threatening)
  Sender: FDA-Public Use
  Company Number: None

PATIENT
  Sex: Female
  Weight: 44.6 kg

DRUGS (1)
  1. AQUAMEPHYTON [Suspect]
     Indication: PROTHROMBIN TIME PROLONGED
     Dosage: 5 MG X1 IV BOLUS
     Route: 040
     Dates: start: 20070202, end: 20070202

REACTIONS (9)
  - CHEST DISCOMFORT [None]
  - DYSPNOEA [None]
  - FACE OEDEMA [None]
  - HYPERHIDROSIS [None]
  - HYPOTENSION [None]
  - PROTHROMBIN TIME PROLONGED [None]
  - TACHYCARDIA [None]
  - VISUAL DISTURBANCE [None]
  - VOMITING [None]
